FAERS Safety Report 9641702 (Version 3)
Quarter: 2014Q2

REPORT INFORMATION
  Report Type: Spontaneous
  Country: IT (occurrence: IT)
  Receive Date: 20131023
  Receipt Date: 20140407
  Transmission Date: 20141212
  Serious: Yes (Other)
  Sender: FDA-Public Use
  Company Number: IT-BRISTOL-MYERS SQUIBB COMPANY-19574896

PATIENT
  Age: 43 Year
  Sex: Female

DRUGS (2)
  1. REYATAZ CAPS 300 MG [Suspect]
     Indication: HIV INFECTION
     Route: 048
     Dates: start: 20130211, end: 20131007
  2. TRUVADA [Concomitant]
     Indication: HIV INFECTION
     Dosage: 1DF:200/245 MG TABS
     Dates: start: 20130211, end: 20131007

REACTIONS (1)
  - Lipodystrophy acquired [Recovered/Resolved]
